FAERS Safety Report 21178064 (Version 1)
Quarter: 2022Q3

REPORT INFORMATION
  Report Type: Spontaneous
  Country: US (occurrence: None)
  Receive Date: 20220805
  Receipt Date: 20220805
  Transmission Date: 20221026
  Serious: Yes (Other)
  Sender: FDA-Public Use
  Company Number: None

PATIENT
  Age: 60 Day
  Sex: Male
  Weight: 117 kg

DRUGS (5)
  1. PAXLOVID [Suspect]
     Active Substance: NIRMATRELVIR\RITONAVIR
     Indication: COVID-19
     Dates: start: 20220711, end: 20220715
  2. ALLOPURINOL [Concomitant]
     Active Substance: ALLOPURINOL
  3. atenolol  Pepcid [Concomitant]
  4. MUCINEX [Concomitant]
     Active Substance: GUAIFENESIN
  5. ALLEGRA [Concomitant]
     Active Substance: FEXOFENADINE HYDROCHLORIDE

REACTIONS (2)
  - Dysgeusia [None]
  - COVID-19 [None]

NARRATIVE: CASE EVENT DATE: 20220729
